FAERS Safety Report 20690884 (Version 1)
Quarter: 2022Q2

REPORT INFORMATION
  Report Type: Spontaneous
  Country: HU (occurrence: HU)
  Receive Date: 20220408
  Receipt Date: 20220408
  Transmission Date: 20220721
  Serious: Yes (Other)
  Sender: FDA-Public Use
  Company Number: HU-JNJFOC-20210301201

PATIENT
  Age: 76 Year
  Sex: Male

DRUGS (5)
  1. IBRUTINIB [Suspect]
     Active Substance: IBRUTINIB
     Indication: Prolymphocytic leukaemia
     Route: 048
     Dates: start: 202003, end: 2020
  2. TIANEPTINE [Concomitant]
     Active Substance: TIANEPTINE
     Indication: Prolymphocytic leukaemia
  3. ENALAPRIL [Concomitant]
     Active Substance: ENALAPRIL
     Indication: Prolymphocytic leukaemia
  4. SPIRONOLACTONE [Concomitant]
     Active Substance: SPIRONOLACTONE
     Indication: Prolymphocytic leukaemia
  5. DIOSMIN [Concomitant]
     Active Substance: DIOSMIN
     Indication: Prolymphocytic leukaemia

REACTIONS (2)
  - Tubulointerstitial nephritis [Recovering/Resolving]
  - Nephropathy toxic [Recovering/Resolving]

NARRATIVE: CASE EVENT DATE: 20200101
